FAERS Safety Report 6957222-5 (Version None)
Quarter: 2010Q3

REPORT INFORMATION
  Report Type: 
  Country: None (occurrence: None)
  Receive Date: 20100831
  Receipt Date: 20100823
  Transmission Date: 20110219
  Serious: No
  Sender: FDA-Public Use
  Company Number: 2008BI033595

PATIENT
  Sex: Male

DRUGS (2)
  1. TYSABRI [Suspect]
     Indication: MULTIPLE SCLEROSIS
     Route: 042
     Dates: start: 20081029, end: 20081029
  2. TYSABRI [Suspect]
     Route: 042
     Dates: start: 20090317, end: 20090317

REACTIONS (8)
  - ABASIA [None]
  - BALANCE DISORDER [None]
  - BURNING SENSATION [None]
  - HEADACHE [None]
  - MUSCLE ATROPHY [None]
  - MYALGIA [None]
  - PAIN IN EXTREMITY [None]
  - PROGRESSIVE MULTIPLE SCLEROSIS [None]
